FAERS Safety Report 5216885-5 (Version None)
Quarter: 2007Q1

REPORT INFORMATION
  Report Type: 
  Country: None (occurrence: None)
  Receive Date: 20070122
  Receipt Date: 20070122
  Transmission Date: 20070707
  Serious: No
  Sender: FDA-Public Use
  Company Number: 1022556-2007-00003

PATIENT
  Sex: 0

DRUGS (1)
  1. UNISOM [Suspect]
     Dates: start: 20070108

REACTIONS (1)
  - ACCIDENTAL OVERDOSE [None]
